FAERS Safety Report 23570075 (Version 1)
Quarter: 2024Q1

REPORT INFORMATION
  Report Type: Spontaneous
  Country: US (occurrence: None)
  Receive Date: 20240226
  Receipt Date: 20240226
  Transmission Date: 20240410
  Serious: Yes (Hospitalization)
  Sender: FDA-Public Use
  Company Number: None

PATIENT
  Sex: Female

DRUGS (11)
  1. GENOTROPIN [Suspect]
     Active Substance: SOMATROPIN
     Indication: Short stature
     Dosage: FREQUENCY : DAILY;?
     Route: 058
     Dates: start: 20231213
  2. CETIRIZINE SOL [Concomitant]
  3. CYPROHEPTAD SYP [Concomitant]
  4. FERROUS SU LF DRO [Concomitant]
  5. GENOTROPIN [Concomitant]
     Active Substance: SOMATROPIN
  6. IBUPROFEN SUS [Concomitant]
  7. NORDITROPIN [Concomitant]
     Active Substance: SOMATROPIN
  8. ONDANSETRON [Concomitant]
     Active Substance: ONDANSETRON
  9. ONDANSETRON HYDROCHLORIDE [Concomitant]
     Active Substance: ONDANSETRON HYDROCHLORIDE
  10. POLYETHYLENE GLYCOL 3350 [Concomitant]
     Active Substance: POLYETHYLENE GLYCOL 3350
  11. TRIAMCINOLONE ACETONIDE [Concomitant]
     Active Substance: TRIAMCINOLONE ACETONIDE

REACTIONS (2)
  - Hospitalisation [None]
  - Therapy interrupted [None]
